FAERS Safety Report 25690751 (Version 1)
Quarter: 2025Q3

REPORT INFORMATION
  Report Type: Spontaneous
  Country: US (occurrence: None)
  Receive Date: 20250817
  Receipt Date: 20250817
  Transmission Date: 20251021
  Serious: Yes (Disabling)
  Sender: FDA-CTU
  Company Number: None

PATIENT
  Age: 36 Year
  Sex: Male
  Weight: 90.45 kg

DRUGS (2)
  1. SYNTHROID [Suspect]
     Active Substance: LEVOTHYROXINE SODIUM
     Indication: Hypothyroidism
     Dates: end: 20100310
  2. IBUPROFEN [Concomitant]
     Active Substance: IBUPROFEN

REACTIONS (7)
  - Symptom recurrence [None]
  - Constipation [None]
  - Brain fog [None]
  - Hypertension [None]
  - Blood cholesterol increased [None]
  - Anxiety [None]
  - Irritability [None]

NARRATIVE: CASE EVENT DATE: 20050519
